FAERS Safety Report 6470896-0 (Version None)
Quarter: 2009Q4

REPORT INFORMATION
  Report Type: 
  Country: None (occurrence: None)
  Receive Date: 20091201
  Receipt Date: 20091112
  Transmission Date: 20100525
  Serious: Yes (Other)
  Sender: FDA-Public Use
  Company Number: 20090499

PATIENT
  Age: 71 Year
  Sex: Female

DRUGS (2)
  1. NEOSTIGMINE METHYLSULFATE INJECTION, USP [Suspect]
     Indication: NEUROMUSCULAR BLOCKADE REVERSAL
  2. NEOSTIGMINE METHYLSULFATE INJECTION, USP (0033-25) 1.0 MG/ML [Suspect]
     Indication: NEUROMUSCULAR BLOCKADE REVERSAL

REACTIONS (1)
  - THERAPEUTIC PRODUCT INEFFECTIVE [None]
